FAERS Safety Report 8502342-7 (Version None)
Quarter: 2012Q3

REPORT INFORMATION
  Report Type: 
  Country: None (occurrence: None)
  Receive Date: 20120711
  Receipt Date: 20120703
  Transmission Date: 20120928
  Serious: Yes (Hospitalization)
  Sender: FDA-Public Use
  Company Number: US-ASTRAZENECA-2011SE14569

PATIENT
  Age: 68 Year
  Sex: Male

DRUGS (4)
  1. NEXIUM [Suspect]
     Route: 048
  2. NEXIUM [Suspect]
     Route: 048
  3. NEXIUM [Suspect]
     Dosage: ONE IN THE MORNING AND ONE IN THE EVENING
     Route: 048
  4. NEXIUM [Suspect]
     Dosage: TAKING TWO TIMES IN THE MORNING AND TWO TIMES IN THE EVENING
     Route: 048

REACTIONS (4)
  - ULCER HAEMORRHAGE [None]
  - INTENTIONAL DRUG MISUSE [None]
  - UPPER GASTROINTESTINAL HAEMORRHAGE [None]
  - OFF LABEL USE [None]
